FAERS Safety Report 8468165-2 (Version None)
Quarter: 2012Q2

REPORT INFORMATION
  Report Type: 
  Country: None (occurrence: None)
  Receive Date: 20120626
  Receipt Date: 20120618
  Transmission Date: 20120825
  Serious: Yes (Hospitalization, Other)
  Sender: FDA-Public Use
  Company Number: JP-MERCK-1202USA01771

PATIENT
  Age: 63 Year
  Sex: Male
  Weight: 66 kg

DRUGS (12)
  1. ACECOL [Concomitant]
     Indication: HYPERTENSION
     Route: 048
  2. HALCION [Concomitant]
     Indication: INSOMNIA
     Route: 048
  3. ASPIRIN [Concomitant]
     Indication: ARTERIOSCLEROSIS
     Route: 048
  4. OLMETEC [Concomitant]
     Indication: HYPERTENSION
     Route: 048
  5. JANUVIA [Suspect]
     Indication: TYPE 2 DIABETES MELLITUS
     Route: 048
     Dates: start: 20110607, end: 20111216
  6. TRICHLORMETHIAZIDE [Concomitant]
     Indication: HYPERTENSION
     Route: 048
     Dates: start: 20091222
  7. DEPAS [Concomitant]
     Indication: INSOMNIA
     Route: 048
     Dates: start: 20080617
  8. ADALAT CC [Concomitant]
     Indication: HYPERTENSION
     Route: 048
     Dates: start: 20110208
  9. PEPCID [Concomitant]
     Indication: GASTRITIS
     Route: 048
  10. ROHYPNOL [Concomitant]
     Indication: INSOMNIA
     Route: 048
     Dates: start: 20100202
  11. LAXOBERON [Concomitant]
     Indication: CONSTIPATION
     Dosage: FOR TON
     Route: 048
  12. ELAVIL [Concomitant]
     Indication: NEUROPATHY PERIPHERAL
     Route: 048
     Dates: start: 20101109

REACTIONS (3)
  - C-REACTIVE PROTEIN INCREASED [None]
  - INTERSTITIAL LUNG DISEASE [None]
  - ANTINUCLEAR ANTIBODY POSITIVE [None]
